FAERS Safety Report 9827702 (Version 1)
Quarter: 2013Q4

REPORT INFORMATION
  Report Type: Spontaneous
  Country: US (occurrence: None)
  Receive Date: 20131120
  Receipt Date: 20131120
  Transmission Date: 20140711
  Serious: Yes (Other)
  Sender: FDA-Public Use
  Company Number: 1000047388

PATIENT
  Age: 53 Year
  Sex: Male

DRUGS (12)
  1. VIIBRYD [Suspect]
     Indication: OBSESSIVE-COMPULSIVE DISORDER
     Dosage: 1 IN 1 D
     Route: 048
     Dates: start: 201304, end: 2013
  2. EFFIENT [Suspect]
     Dosage: 1 IN 1 D
     Route: 048
     Dates: start: 2013
  3. METOPROLOL [Suspect]
     Dates: start: 2013
  4. ISOSORBIDE [Suspect]
     Dates: start: 2013
  5. LOSARTAN [Suspect]
     Dates: start: 2013
  6. ASPIRIN [Concomitant]
  7. LAMICTAL [Concomitant]
  8. TEGRETOL [Concomitant]
  9. LORAZEPAM [Concomitant]
  10. ONGLYZA [Concomitant]
  11. VYTORIN [Concomitant]
  12. ANDROGEL [Concomitant]

REACTIONS (2)
  - Dyspnoea [None]
  - Off label use [None]
